FAERS Safety Report 25094385 (Version 2)
Quarter: 2025Q2

REPORT INFORMATION
  Report Type: Spontaneous
  Country: FR (occurrence: FR)
  Receive Date: 20250319
  Receipt Date: 20250401
  Transmission Date: 20250717
  Serious: Yes (Life-Threatening, Hospitalization, Other)
  Sender: AUROBINDO
  Company Number: FR-MLMSERVICE-20250303-PI423003-00306-4

PATIENT
  Age: 53 Year
  Sex: Female

DRUGS (8)
  1. MYCOPHENOLATE MOFETIL [Suspect]
     Active Substance: MYCOPHENOLATE MOFETIL
     Indication: Immunosuppressant drug therapy
     Dosage: 1500 MILLIGRAM, ONCE A DAY (MYCOPHENOLATE MOFETIL 750 MG ? 2/DAY )
     Route: 065
  2. PREDNISOLONE [Suspect]
     Active Substance: PREDNISOLONE
     Indication: Immunosuppressant drug therapy
     Dosage: 7.5 MILLIGRAM, ONCE A DAY
     Route: 065
  3. TACROLIMUS [Suspect]
     Active Substance: TACROLIMUS
     Indication: Immunosuppressant drug therapy
     Dosage: 7 MILLIGRAM, ONCE A DAY (3.5 MG TWICE A DAY)
     Route: 065
  4. SODIUM CHLORIDE [Concomitant]
     Active Substance: SODIUM CHLORIDE
     Indication: Product used for unknown indication
     Route: 065
  5. PREDNISONE [Concomitant]
     Active Substance: PREDNISONE
     Indication: Product used for unknown indication
     Route: 065
  6. LEVOFLOXACIN [Concomitant]
     Active Substance: LEVOFLOXACIN
     Indication: Pseudomonas infection
     Route: 065
  7. CEFTAZIDIME [Concomitant]
     Active Substance: CEFTAZIDIME
     Indication: Pseudomonas infection
     Route: 065
  8. CIPROFLOXACIN [Concomitant]
     Active Substance: CIPROFLOXACIN
     Indication: Legionella infection
     Route: 065

REACTIONS (5)
  - Acute kidney injury [Unknown]
  - Pneumocystis jirovecii pneumonia [Recovered/Resolved]
  - Anaemia [Unknown]
  - Hypercalcaemia [Recovered/Resolved]
  - Blood 1,25-dihydroxycholecalciferol increased [Recovered/Resolved]
